FAERS Safety Report 4332276-3 (Version None)
Quarter: 2004Q1

REPORT INFORMATION
  Report Type: 
  Country: None (occurrence: None)
  Receive Date: 20040326
  Receipt Date: 20040114
  Transmission Date: 20041129
  Serious: No
  Sender: FDA-Public Use
  Company Number: WAES 0401USA01173

PATIENT
  Age: 25 Year
  Sex: Female

DRUGS (1)
  1. INVANZ [Suspect]
     Indication: WOUND INFECTION
     Dosage: 1.0 GM/IV
     Route: 042

REACTIONS (2)
  - DRUG EXPOSURE DURING PREGNANCY [None]
  - DYSPEPSIA [None]
